FAERS Safety Report 17018724 (Version 2)
Quarter: 2019Q4

REPORT INFORMATION
  Report Type: Report from Study
  Country: IT (occurrence: IT)
  Receive Date: 20191111
  Receipt Date: 20191120
  Transmission Date: 20200122
  Serious: Yes (Other)
  Sender: FDA-Public Use
  Company Number: IT-ACCORD-160418

PATIENT
  Age: 73 Year
  Sex: Female
  Weight: 64 kg

DRUGS (5)
  1. IRINOTECAN MYLAN GENERICS [Suspect]
     Active Substance: IRINOTECAN
     Indication: SMALL INTESTINE CARCINOMA METASTATIC
     Dosage: STRENGTH: 20 MG/ML
     Route: 041
     Dates: start: 20190917, end: 20190917
  2. FLUOROURACIL AHCL [Suspect]
     Active Substance: FLUOROURACIL
     Indication: SMALL INTESTINE CARCINOMA METASTATIC
     Dosage: STRENGTH: 50 MG / ML
     Route: 040
     Dates: start: 20190917, end: 20190917
  3. FLUOROURACIL AHCL [Suspect]
     Active Substance: FLUOROURACIL
     Indication: SMALL INTESTINE CARCINOMA METASTATIC
     Dosage: STRENGTH: 50 MG / ML
     Route: 042
     Dates: start: 20190917, end: 20190919
  4. ONDANSETRON [Concomitant]
     Active Substance: ONDANSETRON
     Route: 041
  5. LEVOFOLENE [Concomitant]
     Active Substance: LEVOLEUCOVORIN CALCIUM
     Dosage: STRENGTH: 175 MG
     Route: 041
     Dates: start: 20190917, end: 20190917

REACTIONS (3)
  - Malaise [Recovering/Resolving]
  - Decreased appetite [Recovering/Resolving]
  - Nausea [Recovering/Resolving]

NARRATIVE: CASE EVENT DATE: 20190924
